FAERS Safety Report 7642224-6 (Version None)
Quarter: 2011Q3

REPORT INFORMATION
  Report Type: 
  Country: None (occurrence: None)
  Receive Date: 20110728
  Receipt Date: 20110719
  Transmission Date: 20111222
  Serious: Yes (Other)
  Sender: FDA-Public Use
  Company Number: PHHY2011US65016

PATIENT
  Sex: Female

DRUGS (1)
  1. RECLAST [Suspect]
     Dosage: UNK UKN, UNK
     Route: 042
     Dates: start: 20110517

REACTIONS (12)
  - URINARY TRACT INFECTION [None]
  - DIARRHOEA [None]
  - CHILLS [None]
  - DECREASED APPETITE [None]
  - CANDIDIASIS [None]
  - FATIGUE [None]
  - RENAL DISORDER [None]
  - WEIGHT DECREASED [None]
  - ANXIETY [None]
  - NAUSEA [None]
  - DIZZINESS [None]
  - HEADACHE [None]
